FAERS Safety Report 15916615 (Version 1)
Quarter: 2019Q1

REPORT INFORMATION
  Report Type: Spontaneous
  Country: US (occurrence: US)
  Receive Date: 20190114
  Receipt Date: 20190114
  Transmission Date: 20190417
  Serious: No
  Sender: FDA-Public Use
  Company Number: None

PATIENT
  Age: 43 Year
  Sex: Male

DRUGS (1)
  1. INLYTA [Suspect]
     Active Substance: AXITINIB
     Dates: start: 20181220

REACTIONS (8)
  - Headache [None]
  - Nausea [None]
  - Blood glucose increased [None]
  - Fatigue [None]
  - Polyuria [None]
  - Diarrhoea [None]
  - Rash [None]
  - Decreased appetite [None]

NARRATIVE: CASE EVENT DATE: 20190114
